FAERS Safety Report 4916100-3 (Version None)
Quarter: 2006Q1

REPORT INFORMATION
  Report Type: 
  Country: None (occurrence: None)
  Receive Date: 20060113
  Receipt Date: 20051004
  Transmission Date: 20060701
  Serious: No
  Sender: FDA-Public Use
  Company Number: 2005SP003345

PATIENT
  Age: 57 Year
  Sex: Female

DRUGS (5)
  1. LUNESTA [Suspect]
     Indication: MIDDLE INSOMNIA
     Dosage: 3 MG, HS, ORAL
     Route: 048
     Dates: start: 20050101, end: 20050101
  2. VALSARTAN [Concomitant]
  3. SYNTHROID [Concomitant]
  4. NATURAL HORMONE [Concomitant]
  5. REPLACEMNET FOR MENOPAUSAL SYMPTOMS [Concomitant]

REACTIONS (2)
  - DRUG INEFFECTIVE [None]
  - MIDDLE INSOMNIA [None]
